FAERS Safety Report 7603827-8 (Version None)
Quarter: 2011Q3

REPORT INFORMATION
  Report Type: 
  Country: None (occurrence: None)
  Receive Date: 20110712
  Receipt Date: 20110705
  Transmission Date: 20111222
  Serious: Yes (Other)
  Sender: FDA-Public Use
  Company Number: FR-VIIV HEALTHCARE LIMITED-B0730854A

PATIENT
  Sex: Female

DRUGS (2)
  1. NORVIR [Suspect]
     Indication: HIV INFECTION CDC CATEGORY B2
     Dosage: 100MG TWICE PER DAY
     Route: 048
     Dates: start: 20021115, end: 20110308
  2. TELZIR [Suspect]
     Indication: HIV INFECTION CDC CATEGORY B2
     Dosage: 700MG TWICE PER DAY
     Route: 048
     Dates: start: 20040922, end: 20110308

REACTIONS (3)
  - SUICIDAL IDEATION [None]
  - COGNITIVE DISORDER [None]
  - ASOCIAL BEHAVIOUR [None]
